FAERS Safety Report 21263079 (Version 1)
Quarter: 2022Q3

REPORT INFORMATION
  Report Type: Spontaneous
  Country: US (occurrence: None)
  Receive Date: 20220828
  Receipt Date: 20220828
  Transmission Date: 20221026
  Serious: Yes (Other)
  Sender: FDA-Public Use
  Company Number: None

PATIENT
  Age: 79 Year
  Sex: Female
  Weight: 67.5 kg

DRUGS (12)
  1. PAXLOVID [Suspect]
     Active Substance: NIRMATRELVIR\RITONAVIR
     Indication: COVID-19
     Dosage: FREQUENCY : TWICE A DAY;?
     Route: 048
     Dates: start: 20220828, end: 20220828
  2. SIMVASTATIN [Concomitant]
     Active Substance: SIMVASTATIN
     Dates: end: 20220828
  3. LOSARTAN [Concomitant]
     Active Substance: LOSARTAN
  4. ESTRADIOL [Concomitant]
     Active Substance: ESTRADIOL
  5. ATENOLOL [Concomitant]
     Active Substance: ATENOLOL
  6. ASPIRIN [Concomitant]
     Active Substance: ASPIRIN
  7. VITAMIN D [Concomitant]
     Active Substance: VITAMIN D NOS
  8. COENZYME Q10 [Concomitant]
     Active Substance: DIETARY SUPPLEMENT\UBIDECARENONE
  9. MINERALS\VITAMINS [Concomitant]
     Active Substance: MINERALS\VITAMINS
  10. VITAMIN C [Concomitant]
     Active Substance: ASCORBIC ACID
  11. CALCIUM [Concomitant]
     Active Substance: CALCIUM
  12. COLLAGEN [Concomitant]
     Active Substance: COLLAGEN

REACTIONS (2)
  - Nausea [None]
  - Taste disorder [None]

NARRATIVE: CASE EVENT DATE: 20220828
